FAERS Safety Report 9204632 (Version 2)
Quarter: 2013Q2

REPORT INFORMATION
  Report Type: Spontaneous
  Country: US (occurrence: None)
  Receive Date: 20130329
  Receipt Date: 20130423
  Transmission Date: 20140414
  Serious: Yes (Other)
  Sender: FDA-Public Use
  Company Number: JPI-P-030900

PATIENT
  Age: 17 Year
  Sex: Female
  Weight: 43.91 kg

DRUGS (1)
  1. XYREM [Suspect]
     Indication: NARCOLEPSY
     Dosage: 4.5GM (2.25GM, 2 IN D), ORAL
     Route: 048
     Dates: start: 20120313

REACTIONS (2)
  - No adverse event [None]
  - Bone marrow transplant [None]
